FAERS Safety Report 7681147-3 (Version None)
Quarter: 2011Q3

REPORT INFORMATION
  Report Type: 
  Country: None (occurrence: None)
  Receive Date: 20110812
  Receipt Date: 20110810
  Transmission Date: 20111222
  Serious: No
  Sender: FDA-Public Use
  Company Number: US-PFIZER INC-2011184113

PATIENT
  Sex: Female
  Weight: 77.098 kg

DRUGS (1)
  1. ADVIL LIQUI-GELS [Suspect]
     Dosage: 200 MG, UNK
     Route: 048
     Dates: start: 20110810

REACTIONS (2)
  - EYE SWELLING [None]
  - DRUG HYPERSENSITIVITY [None]
